FAERS Safety Report 5216563-2 (Version None)
Quarter: 2007Q1

REPORT INFORMATION
  Report Type: 
  Country: None (occurrence: None)
  Receive Date: 20061130
  Receipt Date: 20060929
  Transmission Date: 20070707
  Serious: Yes (Hospitalization)
  Sender: FDA-Public Use
  Company Number: US200608003300

PATIENT
  Age: 26 Year
  Weight: 81.6 kg

DRUGS (2)
  1. ZYPREXA [Suspect]
     Dosage: 5 MG; 10 MG
     Dates: start: 19970101
  2. ZYPREXA [Suspect]
     Dosage: 5 MG; 10 MG
     Dates: start: 20030101

REACTIONS (2)
  - DIABETES MELLITUS [None]
  - METABOLIC DISORDER [None]
